FAERS Safety Report 9367407 (Version 1)
Quarter: 2013Q2

REPORT INFORMATION
  Report Type: Spontaneous
  Country: US (occurrence: US)
  Receive Date: 20130625
  Receipt Date: 20130625
  Transmission Date: 20140414
  Serious: Yes (Other)
  Sender: FDA-Public Use
  Company Number: US-FRI-1000045457

PATIENT
  Age: 44 Year
  Sex: Male
  Weight: 165.1 kg

DRUGS (3)
  1. VIIBRYD [Suspect]
     Dosage: 10 MG
     Route: 048
     Dates: start: 20130416, end: 20130422
  2. VIIBRYD [Suspect]
     Dosage: 20 MG
     Route: 048
     Dates: start: 20130423, end: 20130429
  3. VIIBRYD [Suspect]
     Dosage: 40 MG
     Route: 048
     Dates: start: 20130430

REACTIONS (1)
  - Suicidal ideation [Unknown]
